FAERS Safety Report 6768482-8 (Version None)
Quarter: 2010Q2

REPORT INFORMATION
  Report Type: 
  Country: None (occurrence: None)
  Receive Date: 20100614
  Receipt Date: 20100514
  Transmission Date: 20101027
  Serious: No
  Sender: FDA-Public Use
  Company Number: US-BAYER-200941275NA

PATIENT
  Age: 48 Year
  Sex: Male
  Weight: 83 kg

DRUGS (7)
  1. ADALAT [Suspect]
     Indication: HYPERTENSION
     Dosage: TOTAL DAILY DOSE: 2 DF
     Dates: start: 19951001
  2. LISINOPRIL [Concomitant]
  3. HCTZ [Concomitant]
  4. ASPIRIN [Concomitant]
  5. OMEPRAZOLE [Concomitant]
  6. XANAX [Concomitant]
  7. SIMVASTATIN [Concomitant]

REACTIONS (3)
  - CARDIAC DISORDER [None]
  - ORAL PAIN [None]
  - TOOTH FRACTURE [None]
